FAERS Safety Report 23959967 (Version 1)
Quarter: 2024Q2

REPORT INFORMATION
  Report Type: Spontaneous
  Country: US (occurrence: US)
  Receive Date: 20240611
  Receipt Date: 20240611
  Transmission Date: 20240716
  Serious: No
  Sender: FDA-Public Use
  Company Number: US-BRISTOL-MYERS SQUIBB COMPANY-2024-092105

PATIENT
  Age: 70 Year
  Sex: Female
  Weight: 84.37 kg

DRUGS (1)
  1. POMALYST [Suspect]
     Active Substance: POMALIDOMIDE
     Indication: Acute megakaryocytic leukaemia
     Route: 048

REACTIONS (2)
  - Fatigue [Unknown]
  - White blood cell count decreased [Unknown]
